FAERS Safety Report 15136227 (Version 1)
Quarter: 2018Q3

REPORT INFORMATION
  Report Type: Spontaneous
  Country: DE (occurrence: DE)
  Receive Date: 20180712
  Receipt Date: 20180712
  Transmission Date: 20181010
  Serious: Yes (Other)
  Sender: FDA-Public Use
  Company Number: DE-TEVA-2018-DE-922681

PATIENT
  Age: 70 Year
  Sex: Female

DRUGS (3)
  1. AMLODIPIN ABZ 5 MG TABLETTEN [Suspect]
     Active Substance: AMLODIPINE BESYLATE
     Indication: HYPERTENSION
     Dosage: 1?0?0.5
     Dates: start: 201801
  2. OXYGESIC [Concomitant]
     Active Substance: OXYCODONE
  3. ZOLPIDEM STADA [Concomitant]

REACTIONS (3)
  - Depression suicidal [Unknown]
  - Lethargy [Unknown]
  - Apathy [Unknown]

NARRATIVE: CASE EVENT DATE: 201801
